FAERS Safety Report 11935644 (Version 7)
Quarter: 2016Q4

REPORT INFORMATION
  Report Type: Spontaneous
  Country: FR (occurrence: FR)
  Receive Date: 20160121
  Receipt Date: 20161117
  Transmission Date: 20170206
  Serious: Yes (Hospitalization, Disabling, Other)
  Sender: FDA-Public Use
  Company Number: FR-009507513-1601FRA005256

PATIENT
  Age: 28 Year
  Sex: Male
  Weight: 95 kg

DRUGS (35)
  1. VIRLIX [Concomitant]
     Active Substance: CETIRIZINE HYDROCHLORIDE
     Indication: DYSPNOEA
  2. CELESTENE [Suspect]
     Active Substance: BETAMETHASONE
     Dosage: 1 QUARTER TABLET X 2 WEEKS
     Route: 048
     Dates: start: 201304
  3. FEXOFENADINE [Concomitant]
     Active Substance: FEXOFENADINE\FEXOFENADINE HYDROCHLORIDE
     Indication: ANGIOEDEMA
     Dosage: 180 MG, TID
     Route: 048
     Dates: start: 20130321, end: 201304
  4. PREDNISOLONE. [Suspect]
     Active Substance: PREDNISOLONE
     Indication: DYSPNOEA
  5. SOLUPRED [Suspect]
     Active Substance: PREDNISOLONE
     Dosage: 2 TABLETS PER DAY, X 10 DAYS
     Route: 048
     Dates: start: 20130329, end: 201304
  6. SOLUPRED [Suspect]
     Active Substance: PREDNISOLONE
     Dosage: 2 TABLETS PER DAY X 5 DAYS
     Route: 048
     Dates: start: 20130403, end: 20130407
  7. FEXOFENADINE [Concomitant]
     Active Substance: FEXOFENADINE\FEXOFENADINE HYDROCHLORIDE
     Indication: DYSPNOEA
  8. ATARAX [Concomitant]
     Active Substance: HYDROXYZINE\HYDROXYZINE HYDROCHLORIDE
     Indication: DYSPNOEA
  9. CELESTENE [Suspect]
     Active Substance: BETAMETHASONE
     Dosage: ONE-HALF TABLET PER DAY X 1 MONTH
     Route: 048
     Dates: start: 20130725, end: 201308
  10. CELESTENE [Suspect]
     Active Substance: BETAMETHASONE
     Indication: ANGIOEDEMA
     Dosage: 2 ML (80 DROPS) TO BE DECREASED BY  0.1ML (5 DROPS) QW
     Route: 048
     Dates: start: 20141001
  11. CORTANCYL [Suspect]
     Active Substance: PREDNISONE
     Indication: DYSPNOEA
     Dosage: 2 MG FOR 5 DAYS
     Route: 048
     Dates: start: 20130428, end: 20130502
  12. DIFFU-K [Concomitant]
     Active Substance: POTASSIUM CHLORIDE
     Indication: ANGIOEDEMA
     Dosage: UNK
     Route: 048
     Dates: start: 20130702
  13. CELESTENE [Suspect]
     Active Substance: BETAMETHASONE
     Indication: DYSPNOEA
     Dosage: 1 HALF TABLET X 2 WEEKS
     Route: 048
     Dates: start: 201304, end: 2013
  14. CELESTENE [Suspect]
     Active Substance: BETAMETHASONE
     Dosage: 1 TAB QAM + 1 TAB QPM  X 3 MONTHS
     Route: 048
     Dates: start: 20131204, end: 2014
  15. CELESTENE [Suspect]
     Active Substance: BETAMETHASONE
     Dosage: ONE HALF TABLET QAM
     Route: 048
     Dates: start: 20141001
  16. CELESTENE [Suspect]
     Active Substance: BETAMETHASONE
     Indication: DYSPNOEA
     Dosage: UNK
     Route: 048
     Dates: start: 20141001
  17. PREDNISOLONE. [Suspect]
     Active Substance: PREDNISOLONE
     Indication: ANGIOEDEMA
     Dosage: UNK
     Route: 048
     Dates: start: 20130218
  18. SOLUPRED [Suspect]
     Active Substance: PREDNISOLONE
     Indication: ANGIOEDEMA
     Dosage: 1 TAB, TID, X 3 DAYS
     Route: 048
     Dates: start: 20130129, end: 20130131
  19. CORTANCYL [Suspect]
     Active Substance: PREDNISONE
     Dosage: 1 MG FOR 5 DAYS
     Route: 048
     Dates: start: 20130503, end: 20130507
  20. ATARAX [Concomitant]
     Active Substance: HYDROXYZINE\HYDROXYZINE HYDROCHLORIDE
     Indication: ANGIOEDEMA
     Dosage: 1 TAB IN EVENING
     Route: 048
     Dates: start: 20141001
  21. VIRLIX [Concomitant]
     Active Substance: CETIRIZINE HYDROCHLORIDE
     Indication: ANGIOEDEMA
     Dosage: 1 TAB IN MORNING
     Route: 048
     Dates: start: 20141001
  22. CELESTENE [Suspect]
     Active Substance: BETAMETHASONE
     Indication: ANGIOEDEMA
     Dosage: 1 TABLET, X 1 WEEK
     Route: 048
     Dates: start: 20130417, end: 20130423
  23. CELESTENE [Suspect]
     Active Substance: BETAMETHASONE
     Dosage: 1 TABLET PER DAY X 5 DAYS
     Dates: start: 20130423, end: 20130427
  24. SOLUPRED [Suspect]
     Active Substance: PREDNISOLONE
     Dosage: 2 TABLETS PER DAY, X 1 MONTH
     Route: 048
     Dates: start: 20130309, end: 201304
  25. CELESTENE [Suspect]
     Active Substance: BETAMETHASONE
     Dosage: ONE-HALF TABLET PER DAY X 5 DAYS
     Route: 048
     Dates: start: 201304, end: 201304
  26. SOLUPRED [Suspect]
     Active Substance: PREDNISOLONE
     Dosage: 1.5 TABLETS PER DAY FOR 5 DAYS
     Route: 048
     Dates: start: 20130408, end: 20130412
  27. TRIDESONIT [Suspect]
     Active Substance: DESONIDE
     Indication: PRODUCT USED FOR UNKNOWN INDICATION
     Route: 065
  28. CELESTENE [Suspect]
     Active Substance: BETAMETHASONE
     Dosage: 1.5 TABLETS PER DAY X 3 MONTHS
     Route: 048
     Dates: start: 20130330, end: 201305
  29. CELESTENE [Suspect]
     Active Substance: BETAMETHASONE
     Dosage: 1 TABLET PER DAY X 10 DAYS
     Route: 048
     Dates: start: 20130702, end: 20130711
  30. CELESTENE [Suspect]
     Active Substance: BETAMETHASONE
     Indication: ALLERGY TO ANIMAL
  31. SOLUPRED [Suspect]
     Active Substance: PREDNISOLONE
     Indication: DYSPNOEA
     Dosage: 2 TABLETS, BID, X 2 DAYS
     Route: 048
     Dates: start: 20130218, end: 20130219
  32. SOLUPRED [Suspect]
     Active Substance: PREDNISOLONE
     Dosage: 1 TABLET PER DAY X 5 DAYS
     Route: 048
     Dates: start: 20130413, end: 20150417
  33. CORTANCYL [Suspect]
     Active Substance: PREDNISONE
     Indication: ANGIOEDEMA
     Dosage: 5 MG FOR 5 DAYS
     Route: 065
     Dates: start: 20130423, end: 20130427
  34. CLARITYNE [Concomitant]
     Active Substance: LORATADINE
     Indication: SWELLING FACE
     Dosage: 2 TABS PER DAY
     Route: 048
     Dates: start: 20130702, end: 20130705
  35. DIFFU-K [Concomitant]
     Active Substance: POTASSIUM CHLORIDE
     Indication: DYSPNOEA

REACTIONS (31)
  - Insomnia [Recovered/Resolved]
  - Cushing^s syndrome [Unknown]
  - Cataract [Unknown]
  - Haematoma [Unknown]
  - Hepatic function abnormal [Unknown]
  - Nocturia [Recovered/Resolved]
  - Osteoporosis [Unknown]
  - Sleep apnoea syndrome [Unknown]
  - Abdominal distension [Unknown]
  - Contusion [Unknown]
  - Joint dislocation [Recovering/Resolving]
  - Lipohypertrophy [Unknown]
  - Ecchymosis [Unknown]
  - Fatigue [Unknown]
  - Pain in extremity [Unknown]
  - Hepatic steatosis [Unknown]
  - Skin striae [Unknown]
  - Dyslipidaemia [Unknown]
  - Infection [Unknown]
  - Bronchial disorder [Unknown]
  - Onychomycosis [Unknown]
  - Loss of libido [Unknown]
  - Drug prescribing error [Unknown]
  - Musculoskeletal pain [Unknown]
  - Adrenal insufficiency [Unknown]
  - Wrist fracture [Recovering/Resolving]
  - Musculoskeletal pain [Unknown]
  - Obesity [Unknown]
  - Abdominal pain upper [Unknown]
  - Weight increased [Recovering/Resolving]
  - Hypertension [Not Recovered/Not Resolved]

NARRATIVE: CASE EVENT DATE: 20131016
